FAERS Safety Report 4848544-2 (Version None)
Quarter: 2005Q4

REPORT INFORMATION
  Report Type: 
  Country: None (occurrence: None)
  Receive Date: 20051206
  Receipt Date: 20051129
  Transmission Date: 20060501
  Serious: Yes (Disabling, Other)
  Sender: FDA-Public Use
  Company Number: 2005150781

PATIENT
  Sex: Female

DRUGS (11)
  1. CELEBREX [Suspect]
     Indication: ILL-DEFINED DISORDER
  2. NEURONTIN [Suspect]
     Indication: ILL-DEFINED DISORDER
  3. VISTARIL [Suspect]
     Indication: ILL-DEFINED DISORDER
  4. NEXIUM [Concomitant]
  5. ZELNORM [Concomitant]
  6. LAMISIL [Concomitant]
  7. PREMARIN [Concomitant]
  8. ULTRAM [Concomitant]
  9. ADVAIR DISKUS (FLUTICASONE PROPIONATE, SALMETEROL XINAFOATE) [Concomitant]
  10. FLONASE [Concomitant]
  11. DYAZIDE [Concomitant]

REACTIONS (5)
  - ARTHRITIS [None]
  - BACK DISORDER [None]
  - HERPES ZOSTER [None]
  - MIGRAINE [None]
  - MULTIPLE ALLERGIES [None]
